FAERS Safety Report 18014206 (Version 3)
Quarter: 2021Q4

REPORT INFORMATION
  Report Type: Report from Study
  Country: CZ (occurrence: CZ)
  Receive Date: 20200713
  Receipt Date: 20211014
  Transmission Date: 20220303
  Serious: Yes (Hospitalization)
  Sender: FDA-Public Use
  Company Number: CZ-PFIZER INC-2019542629

PATIENT
  Age: 26 Year
  Sex: Male
  Weight: 86 kg

DRUGS (4)
  1. GLASDEGIB [Suspect]
     Active Substance: GLASDEGIB
     Indication: Acute myeloid leukaemia
     Dosage: ONCE DAILY CONTINUOUS
     Route: 048
     Dates: start: 20191026, end: 20191215
  2. CYTARABINE [Suspect]
     Active Substance: CYTARABINE
     Indication: Acute myeloid leukaemia
     Dosage: 6375 MG, CYCLIC (EVERY 12 HOUR DAY 1, 3, 5)
     Route: 042
     Dates: start: 20191129, end: 20191203
  3. DAUNORUBICIN [Suspect]
     Active Substance: DAUNORUBICIN
     Indication: Acute myeloid leukaemia
     Dosage: 124 MG, CYCLIC (DAY 1-3)
     Route: 042
     Dates: start: 20191026, end: 20191028
  4. DAPSONE [Concomitant]
     Active Substance: DAPSONE
     Indication: Infection prophylaxis
     Dosage: 100 MG, 1X/DAY
     Route: 048
     Dates: start: 20191119

REACTIONS (1)
  - Clostridial sepsis [Recovered/Resolved]

NARRATIVE: CASE EVENT DATE: 20191215
